FAERS Safety Report 13139332 (Version 2)
Quarter: 2017Q1

REPORT INFORMATION
  Report Type: Spontaneous
  Country: BR (occurrence: BR)
  Receive Date: 20170123
  Receipt Date: 20170206
  Transmission Date: 20170428
  Serious: Yes (Other)
  Sender: FDA-Public Use
  Company Number: BR-PFIZER INC-2017023371

PATIENT
  Age: 40 Year
  Sex: Female

DRUGS (3)
  1. GENOTROPIN [Suspect]
     Active Substance: SOMATROPIN
     Indication: PHYSICAL FITNESS TRAINING
  2. GENOTROPIN [Suspect]
     Active Substance: SOMATROPIN
     Indication: OBESITY
  3. GENOTROPIN [Suspect]
     Active Substance: SOMATROPIN
     Indication: HYPERTROPHY
     Dosage: UNK
     Dates: start: 201612

REACTIONS (2)
  - Product use issue [Unknown]
  - Foot fracture [Unknown]

NARRATIVE: CASE EVENT DATE: 201612
